FAERS Safety Report 13588443 (Version 1)
Quarter: 2017Q2

REPORT INFORMATION
  Report Type: Spontaneous
  Country: US (occurrence: US)
  Receive Date: 20170529
  Receipt Date: 20170529
  Transmission Date: 20170830
  Serious: No
  Sender: FDA-Public Use
  Company Number: US-BAUSCH-BL-2016-020901

PATIENT
  Age: 92 Year
  Sex: Female

DRUGS (2)
  1. PREDNISOLONE ACETATE 1% [Suspect]
     Active Substance: PREDNISOLONE ACETATE
     Indication: OPHTHALMIC HERPES SIMPLEX
     Dosage: 1 DROP 4 TIMES A DAY WEEK ONE AND TAPER BY 1 DROP WEEKLY
     Dates: start: 20160825
  2. PROLENSA [Suspect]
     Active Substance: BROMFENAC SODIUM
     Indication: OPHTHALMIC HERPES SIMPLEX
     Route: 047
     Dates: start: 201608

REACTIONS (3)
  - Drug prescribing error [Unknown]
  - No adverse event [Unknown]
  - Off label use [Unknown]
